FAERS Safety Report 4814885-8 (Version None)
Quarter: 2005Q4

REPORT INFORMATION
  Report Type: 
  Country: None (occurrence: None)
  Receive Date: 20051028
  Receipt Date: 20051017
  Transmission Date: 20060501
  Serious: Yes (Hospitalization)
  Sender: FDA-Public Use
  Company Number: FR-ROCHE-421467

PATIENT
  Age: 75 Year
  Sex: Female
  Weight: 80 kg

DRUGS (5)
  1. APRANAX [Suspect]
     Indication: DRUG USE FOR UNKNOWN INDICATION
     Route: 048
     Dates: end: 20041102
  2. ARIXTRA [Suspect]
     Indication: DRUG USE FOR UNKNOWN INDICATION
     Dosage: DOSING REGIMEN REPORTED AS ONE DOSE PER DAY.
     Route: 058
     Dates: start: 20041011, end: 20041022
  3. TRAMADOL HCL [Concomitant]
  4. MOPRAL [Concomitant]
  5. DOLIPRANE [Concomitant]

REACTIONS (2)
  - HAEMATOMA [None]
  - OEDEMA [None]
